FAERS Safety Report 5310291-0 (Version None)
Quarter: 2007Q2

REPORT INFORMATION
  Report Type: 
  Country: None (occurrence: None)
  Receive Date: 20070427
  Receipt Date: 20070417
  Transmission Date: 20071010
  Serious: Yes (Other)
  Sender: FDA-Public Use
  Company Number: US-SANOFI-SYNTHELABO-F03200700076

PATIENT
  Age: 75 Year
  Sex: Male
  Weight: 87 kg

DRUGS (7)
  1. BIVALIRUDIN [Concomitant]
     Dosage: UNK
     Route: 065
     Dates: start: 20060801
  2. PLAVIX [Suspect]
     Indication: PERCUTANEOUS CORONARY INTERVENTION
     Dosage: FOUR CAPSULES PRIOR TO PCI AND FOUR CAPSULES POST PCI
     Route: 048
     Dates: start: 20060801, end: 20060801
  3. PLAVIX [Suspect]
     Dosage: FOUR CAPSULES PRIOR TO PCI AND FOUR CAPSULES POST PCI
     Route: 048
     Dates: start: 20060801, end: 20060801
  4. FENTANYL [Concomitant]
     Dosage: UNK
     Route: 065
  5. MIDAZOLAM HCL [Concomitant]
     Dosage: UNK
     Route: 065
  6. PLACEBO RUN-IN [Suspect]
     Indication: PERCUTANEOUS CORONARY INTERVENTION
     Dosage: 6.6 ML BOLUS FOLLOWED BY AN INFUSION OF 109.62 ML
     Route: 040
     Dates: start: 20060801, end: 20060801
  7. PLACEBO RUN-IN [Suspect]
     Dosage: 6.6 ML BOLUS FOLLOWED BY AN INFUSION OF 109.62 ML
     Route: 041
     Dates: start: 20060801, end: 20060801

REACTIONS (1)
  - BRADYCARDIA [None]
